FAERS Safety Report 8539981-3 (Version None)
Quarter: 2012Q3

REPORT INFORMATION
  Report Type: 
  Country: None (occurrence: None)
  Receive Date: 20120726
  Receipt Date: 20120724
  Transmission Date: 20120928
  Serious: Yes (Life-Threatening, Hospitalization, Other)
  Sender: FDA-Public Use
  Company Number: PHEH2009US16875

PATIENT
  Sex: Female

DRUGS (16)
  1. VALIUM [Suspect]
     Dosage: 1/2 TABLET, FOUR TIMES DAILY
  2. ZENEX [Suspect]
  3. ACTIVELLA [Concomitant]
  4. BENZODIAZEPINES [Suspect]
  5. LOPRESSOR [Suspect]
     Dosage: 25 MG, UNK
  6. LOPRESSOR [Suspect]
     Dosage: 50 MG, UNK
  7. VALIUM [Suspect]
     Dosage: 1/2 TABLET OF 0.25 MG, THREE TIMES DAILY
  8. TOPROL-XL [Suspect]
  9. XANAX [Concomitant]
  10. METOPROLOL SUCCINATE [Suspect]
  11. FEMHRT [Concomitant]
     Indication: HORMONE LEVEL ABNORMAL
  12. ANTIDEPRESSANTS [Suspect]
     Dates: start: 20091209
  13. LOPRESSOR [Suspect]
     Indication: PANIC ATTACK
     Dosage: 50 MG, Q12H
  14. LOPRESSOR [Suspect]
     Dosage: 25 MG, Q6H
  15. KLONOPIN [Suspect]
     Dosage: 0.25 MG, UNK
     Dates: start: 20091209
  16. VALIUM [Suspect]
     Dosage: 1 TABLET OF 0.25 MG, THREE TIMES DAILY

REACTIONS (34)
  - FEELING ABNORMAL [None]
  - HEART RATE INCREASED [None]
  - HYPERVIGILANCE [None]
  - ABNORMAL BEHAVIOUR [None]
  - ABNORMAL DREAMS [None]
  - APATHY [None]
  - APPARENT DEATH [None]
  - ANXIETY [None]
  - DEPRESSION [None]
  - DRUG INTOLERANCE [None]
  - NIGHTMARE [None]
  - NERVOUSNESS [None]
  - PERIARTHRITIS [None]
  - ALOPECIA [None]
  - PALPITATIONS [None]
  - SUPRAVENTRICULAR TACHYCARDIA [None]
  - WEIGHT DECREASED [None]
  - ABDOMINAL DISCOMFORT [None]
  - CONDITION AGGRAVATED [None]
  - MOVEMENT DISORDER [None]
  - DRUG INEFFECTIVE [None]
  - SOMNOLENCE [None]
  - SENSATION OF FOREIGN BODY [None]
  - MALAISE [None]
  - ATAXIA [None]
  - LETHARGY [None]
  - INSOMNIA [None]
  - APHAGIA [None]
  - SNEEZING [None]
  - NAUSEA [None]
  - CARDIAC DISORDER [None]
  - PANIC ATTACK [None]
  - DRY MOUTH [None]
  - HEADACHE [None]
